FAERS Safety Report 6589176-8 (Version None)
Quarter: 2010Q1

REPORT INFORMATION
  Report Type: 
  Country: None (occurrence: None)
  Receive Date: 20100218
  Receipt Date: 20100209
  Transmission Date: 20100710
  Serious: Yes (Death)
  Sender: FDA-Public Use
  Company Number: US-ROXANE LABORATORIES, INC.-2010-DE-00838GD

PATIENT
  Age: 53 Year
  Sex: Female

DRUGS (8)
  1. PARACETAMOL [Suspect]
     Route: 048
  2. LITHIUM [Suspect]
     Route: 048
  3. OXYBUTYNIN [Suspect]
     Route: 048
  4. ALBUTEROL [Suspect]
     Route: 048
  5. ANGIOTENSIN-CONVERTING ENZYME INHIBITOR [Suspect]
     Route: 048
  6. CLEMASTINE FUMARATE [Suspect]
     Route: 048
  7. TOPICAL STEROIDS [Suspect]
     Route: 048
  8. VALPROIC ACID [Suspect]
     Route: 048

REACTIONS (1)
  - ADVERSE DRUG REACTION [None]
